FAERS Safety Report 21018146 (Version 1)
Quarter: 2022Q2

REPORT INFORMATION
  Report Type: Spontaneous
  Country: US (occurrence: None)
  Receive Date: 20220628
  Receipt Date: 20220628
  Transmission Date: 20220721
  Serious: Yes (Other)
  Sender: FDA-Public Use
  Company Number: None

PATIENT
  Age: 70 Year
  Sex: 0

DRUGS (1)
  1. BEBTELOVIMAB [Suspect]
     Active Substance: BEBTELOVIMAB
     Indication: COVID-19
     Dosage: OTHER FREQUENCY : ONE TIME;?
     Route: 040
     Dates: start: 20220624, end: 20220624

REACTIONS (5)
  - Presyncope [None]
  - Pallor [None]
  - Hyperhidrosis [None]
  - Unresponsive to stimuli [None]
  - Blood pressure decreased [None]

NARRATIVE: CASE EVENT DATE: 20220624
